FAERS Safety Report 10081275 (Version 2)
Quarter: 2014Q2

REPORT INFORMATION
  Report Type: Spontaneous
  Country: US (occurrence: US)
  Receive Date: 20140416
  Receipt Date: 20140618
  Transmission Date: 20141212
  Serious: No
  Sender: FDA-Public Use
  Company Number: US-PFIZER INC-2014103867

PATIENT
  Age: 54 Year
  Sex: Female
  Weight: 99.8 kg

DRUGS (4)
  1. LYRICA [Suspect]
     Indication: DIABETIC NEUROPATHY
     Dosage: 225 MG, 2X/DAY
     Dates: start: 201001
  2. LORTAB [Concomitant]
     Indication: PAIN
     Dosage: UNK
  3. CYMBALTA [Concomitant]
     Indication: PAIN
     Dosage: UNK
  4. CYMBALTA [Concomitant]
     Indication: ANXIETY

REACTIONS (2)
  - Diabetic neuropathy [Not Recovered/Not Resolved]
  - Disease progression [Not Recovered/Not Resolved]
